FAERS Safety Report 19093997 (Version 1)
Quarter: 2021Q2

REPORT INFORMATION
  Report Type: Spontaneous
  Country: US (occurrence: US)
  Receive Date: 20210405
  Receipt Date: 20210405
  Transmission Date: 20210717
  Serious: No
  Sender: FDA-Public Use
  Company Number: US-NEUROCRINE BIOSCIENCES INC.-2021NBI01232

PATIENT

DRUGS (6)
  1. INGREZZA [Suspect]
     Active Substance: VALBENAZINE
     Dosage: 40 MILLIGRAM
     Route: 048
     Dates: start: 20210115, end: 20210211
  2. INGREZZA [Suspect]
     Active Substance: VALBENAZINE
     Indication: TARDIVE DYSKINESIA
     Dosage: 80 MILLIGRAM
     Route: 048
     Dates: start: 20210212, end: 20210225
  3. LATUDA [Concomitant]
     Active Substance: LURASIDONE HYDROCHLORIDE
     Dosage: 160 MILLIGRAM, QD
     Route: 065
  4. INGREZZA [Suspect]
     Active Substance: VALBENAZINE
     Dosage: 40 MILLIGRAM
     Route: 048
     Dates: start: 20210226
  5. CLOZAPINE. [Concomitant]
     Active Substance: CLOZAPINE
     Dosage: 300 MILLIGRAM, QD
     Route: 065
  6. GLYCOPYRROLATE [GLYCOPYRRONIUM] [Concomitant]
     Active Substance: GLYCOPYRRONIUM
     Indication: DROOLING
     Dosage: UNK

REACTIONS (6)
  - Dyskinesia [Unknown]
  - Restlessness [Unknown]
  - Gait disturbance [Unknown]
  - Headache [Unknown]
  - Vision blurred [Unknown]
  - Eye movement disorder [Unknown]

NARRATIVE: CASE EVENT DATE: 202102
